FAERS Safety Report 24087253 (Version 1)
Quarter: 2024Q3

REPORT INFORMATION
  Report Type: Spontaneous
  Country: DE (occurrence: DE)
  Receive Date: 20240714
  Receipt Date: 20240714
  Transmission Date: 20241016
  Serious: Yes (Hospitalization, Other)
  Sender: DEXCEL
  Company Number: None

PATIENT
  Age: 68 Year
  Sex: Male
  Weight: 73 kg

DRUGS (5)
  1. Bifiteral 667 g/l [Concomitant]
     Dosage: 10 ML-10 ML- 10ML ; ONGOING
     Dates: start: 20240611
  2. XIFAXAN [Concomitant]
     Active Substance: RIFAXIMIN
     Dosage: 1-0-1, ONGOING
     Dates: start: 20240611
  3. PANTOPRAZOLE SODIUM [Suspect]
     Active Substance: PANTOPRAZOLE SODIUM
     Indication: Gastrooesophageal variceal haemorrhage prophylaxis
     Dosage: 1-0-0
     Dates: start: 20240612, end: 20240619
  4. CARVEDILOL [Concomitant]
     Active Substance: CARVEDILOL
     Dosage: 1-0-0, ONGOING
     Dates: start: 20240612
  5. CIPROFLOXACIN [Concomitant]
     Active Substance: CIPROFLOXACIN
     Indication: Antibiotic prophylaxis
     Dosage: 0,5-0-0,5, ONGOING
     Dates: start: 20240611

REACTIONS (2)
  - Leukopenia [Recovered/Resolved]
  - Lymphopenia [Recovered/Resolved]

NARRATIVE: CASE EVENT DATE: 20240617
